FAERS Safety Report 9867663 (Version 2)
Quarter: 2014Q1

REPORT INFORMATION
  Report Type: Report from Study
  Country: TR (occurrence: TR)
  Receive Date: 20140204
  Receipt Date: 20140204
  Transmission Date: 20141002
  Serious: Yes (Hospitalization)
  Sender: FDA-Public Use
  Company Number: TR-SANOFI-AVENTIS-2011SA001889

PATIENT
  Age: 41 Year
  Sex: Female
  Weight: 65 kg

DRUGS (6)
  1. TERIFLUNOMIDE [Suspect]
     Indication: MULTIPLE SCLEROSIS RELAPSE
     Dosage: DOSE:1 UNIT(S)
     Route: 048
     Dates: start: 20100202
  2. EFFEXOR [Concomitant]
     Indication: SUICIDE ATTEMPT
     Route: 048
     Dates: start: 20101117, end: 20101117
  3. QUETIAPINE FUMARATE [Concomitant]
     Indication: SUICIDE ATTEMPT
     Route: 048
     Dates: start: 20101117, end: 20101117
  4. CLOMIPRAMINE [Concomitant]
     Indication: DEPRESSION
     Route: 048
     Dates: start: 20101106
  5. ALPRAZOLAM [Concomitant]
     Indication: ANXIETY
     Route: 048
     Dates: start: 20101106, end: 20101115
  6. DIAZEPAM [Concomitant]
     Indication: ANXIETY
     Route: 048
     Dates: start: 20101106

REACTIONS (1)
  - Suicide attempt [Recovered/Resolved]
